FAERS Safety Report 8334965-2 (Version None)
Quarter: 2012Q2

REPORT INFORMATION
  Report Type: 
  Country: None (occurrence: None)
  Receive Date: 20120503
  Receipt Date: 20120419
  Transmission Date: 20120825
  Serious: Yes (Other)
  Sender: FDA-Public Use
  Company Number: FR-JNJFOC-20110810235

PATIENT
  Sex: Male
  Weight: 88 kg

DRUGS (5)
  1. ISENTRESS [Suspect]
     Indication: HIV INFECTION
     Dates: start: 20110221
  2. DARUNAVIR ETHANOLATE [Suspect]
     Indication: HIV INFECTION
     Route: 048
     Dates: start: 20110221
  3. MARAVIROC [Suspect]
     Indication: HIV INFECTION
     Dates: start: 20110221
  4. NORVIR [Suspect]
     Indication: HIV INFECTION
     Dates: start: 20110221
  5. TRUVADA [Concomitant]
     Indication: HIV INFECTION
     Dates: start: 20110221

REACTIONS (1)
  - GAMMA-GLUTAMYLTRANSFERASE INCREASED [None]
